FAERS Safety Report 5524731-5 (Version None)
Quarter: 2007Q4

REPORT INFORMATION
  Report Type: 
  Country: None (occurrence: None)
  Receive Date: 20071123
  Receipt Date: 20071116
  Transmission Date: 20080405
  Serious: Yes (Hospitalization)
  Sender: FDA-Public Use
  Company Number: PHBS2007CN19047

PATIENT
  Age: 50 Year

DRUGS (1)
  1. LAMISIL [Suspect]
     Dosage: 1 DF, QD
     Route: 048

REACTIONS (2)
  - GENERALISED OEDEMA [None]
  - PYREXIA [None]
